FAERS Safety Report 23682056 (Version 3)
Quarter: 2024Q2

REPORT INFORMATION
  Report Type: Report from Study
  Country: CA (occurrence: CA)
  Receive Date: 20240328
  Receipt Date: 20240416
  Transmission Date: 20240716
  Serious: Yes (Hospitalization)
  Sender: FDA-Public Use
  Company Number: CA-JAMP PHARMA CORPORATION-2024-JAM-CA-00055

PATIENT
  Age: 70 Year
  Sex: Male

DRUGS (2)
  1. SIMLANDI [Suspect]
     Active Substance: ADALIMUMAB-RYVK
     Indication: Crohn^s disease
     Dosage: 40MG, EVERY WEEK
     Route: 058
     Dates: start: 20240313
  2. SIMLANDI [Suspect]
     Active Substance: ADALIMUMAB-RYVK
     Indication: Crohn^s disease
     Dosage: 40MG, EVERY WEEK
     Route: 058
     Dates: start: 20240104, end: 2024

REACTIONS (3)
  - Procedural complication [Unknown]
  - Product administration error [Unknown]
  - Product quality issue [Unknown]
